FAERS Safety Report 5379253-1 (Version None)
Quarter: 2007Q3

REPORT INFORMATION
  Report Type: 
  Country: None (occurrence: None)
  Receive Date: 20070705
  Receipt Date: 20070629
  Transmission Date: 20080115
  Serious: Yes (Hospitalization)
  Sender: FDA-Public Use
  Company Number: US-BOEHRINGER INGELHEIM PHARMACEUTICALS, INC.-2007-BP-11941BP

PATIENT
  Sex: Male

DRUGS (6)
  1. ATROVENT [Suspect]
     Indication: CHRONIC OBSTRUCTIVE PULMONARY DISEASE
     Route: 055
  2. ATROVENT [Suspect]
     Indication: DYSPNOEA
  3. ATROVENT [Suspect]
     Indication: PNEUMONIA
  4. GUAIFENEX DM [Concomitant]
  5. LISINOPRIL [Concomitant]
  6. FLOMAX [Concomitant]

REACTIONS (1)
  - PNEUMONIA [None]
